FAERS Safety Report 13047166 (Version 1)
Quarter: 2016Q4

REPORT INFORMATION
  Report Type: Spontaneous
  Country: ES (occurrence: ES)
  Receive Date: 20161220
  Receipt Date: 20161220
  Transmission Date: 20170207
  Serious: Yes (Hospitalization, Other)
  Sender: FDA-Public Use
  Company Number: ES-APOTEX-2016AP015783

PATIENT
  Age: 80 Year
  Sex: Male

DRUGS (1)
  1. CEFUROXIMA APOTEX COMPRIMIDOS [Suspect]
     Active Substance: CEFUROXIME
     Indication: CYSTITIS
     Dosage: UNK
     Route: 065

REACTIONS (1)
  - Hypersensitivity vasculitis [Unknown]
